FAERS Safety Report 4885465-3 (Version None)
Quarter: 2005Q4

REPORT INFORMATION
  Report Type: 
  Country: None (occurrence: None)
  Receive Date: 20051220
  Receipt Date: 20041220
  Transmission Date: 20060501
  Serious: Yes (Other)
  Sender: FDA-Public Use
  Company Number: HQWYE129321DEC04

PATIENT
  Age: 56 Year
  Sex: Female

DRUGS (1)
  1. EFFEXOR XR [Suspect]
     Indication: ANXIETY
     Dosage: 75 MG 1X PER 1 DAY, ORAL
     Route: 048

REACTIONS (1)
  - VERTIGO [None]
